FAERS Safety Report 12463676 (Version 4)
Quarter: 2019Q2

REPORT INFORMATION
  Report Type: Spontaneous
  Country: US (occurrence: US)
  Receive Date: 20160614
  Receipt Date: 20190501
  Transmission Date: 20190711
  Serious: No
  Sender: FDA-Public Use
  Company Number: US-PFIZER INC-2016293146

PATIENT
  Age: 68 Year
  Sex: Female

DRUGS (13)
  1. LYRICA [Suspect]
     Active Substance: PREGABALIN
     Dosage: UNK [200]
  2. PROMETRIUM [Concomitant]
     Active Substance: PROGESTERONE
     Dosage: 100 MG, 1X/DAY [PM]
  3. MS IR [Concomitant]
     Active Substance: MORPHINE SULFATE
     Dosage: UNK [15]
  4. MS CONTIN [Concomitant]
     Active Substance: MORPHINE SULFATE
     Dosage: UNK [15]
  5. MIRALAX [Concomitant]
     Active Substance: POLYETHYLENE GLYCOL 3350
     Dosage: UNK, ALTERNATE DAY [WHEN MILK EVERY OTHER DAY]
  6. LYRICA [Suspect]
     Active Substance: PREGABALIN
     Indication: PAIN
     Dosage: 150 MG, 3X/DAY (150)
     Route: 048
  7. KETAMINE [Concomitant]
     Active Substance: KETAMINE
     Dosage: 100 MG/ML, AS NEEDED [100 MG/ML 60 ML (AS NEEDED)]
  8. CYMBALTA [Concomitant]
     Active Substance: DULOXETINE HYDROCHLORIDE
     Dosage: 60 MG, 1X/DAY [3:00 PM]
  9. ESTRADIOL. [Concomitant]
     Active Substance: ESTRADIOL
     Dosage: 1 MG, 1X/DAY [PM]
  10. MS IR [Concomitant]
     Active Substance: MORPHINE SULFATE
     Dosage: UNK UNK, 2X/DAY [15 X 2]
  11. LEVOXYL [Concomitant]
     Active Substance: LEVOTHYROXINE SODIUM
     Dosage: 100 UG, 1X/DAY [AM]
  12. LYRICA [Suspect]
     Active Substance: PREGABALIN
     Dosage: UNK [50-150]
  13. AMBIEN [Concomitant]
     Active Substance: ZOLPIDEM TARTRATE
     Dosage: 10 MG, UNK

REACTIONS (2)
  - Muscular weakness [Unknown]
  - Back pain [Unknown]
